FAERS Safety Report 17862612 (Version 3)
Quarter: 2020Q3

REPORT INFORMATION
  Report Type: Report from Study
  Country: None (occurrence: JP)
  Receive Date: 20200605
  Receipt Date: 20200715
  Transmission Date: 20201103
  Serious: Yes (Other)
  Sender: FDA-Public Use
  Company Number: JP-ABBVIE-20K-087-3378110-00

PATIENT
  Age: 75 Year
  Sex: Male

DRUGS (1)
  1. DUODOPA [Suspect]
     Active Substance: CARBIDOPA\LEVODOPA
     Indication: PARKINSON^S DISEASE
     Route: 050
     Dates: start: 20200205

REACTIONS (7)
  - Loss of consciousness [Unknown]
  - Confusional state [Unknown]
  - Blood pressure decreased [Unknown]
  - Gastric disorder [Unknown]
  - Tremor [Unknown]
  - Hallucination [Unknown]
  - Medical device site erosion [Unknown]

NARRATIVE: CASE EVENT DATE: 2020
